FAERS Safety Report 15989147 (Version 1)
Quarter: 2019Q1

REPORT INFORMATION
  Report Type: Other
  Country: IT (occurrence: IT)
  Receive Date: 20190221
  Receipt Date: 20190221
  Transmission Date: 20190418
  Serious: Yes (Hospitalization)
  Sender: FDA-Public Use
  Company Number: IT-ACCORD-108507

PATIENT
  Age: 93 Year
  Sex: Female

DRUGS (6)
  1. FUROSEMIDE. [Suspect]
     Active Substance: FUROSEMIDE
     Indication: HYPERTENSION
     Route: 048
     Dates: start: 20170101, end: 20170722
  2. CATAPRESAN [Concomitant]
     Active Substance: CLONIDINE
  3. MINIAS [Concomitant]
     Active Substance: LORMETAZEPAM
  4. FLUXUM [Concomitant]
     Active Substance: PARNAPARIN SODIUM
     Dosage: 3.200 U.I. AXA SOLUTION FOR INJECTION IN PRE-FILLED SYRINGE
  5. LANSOPRAZOLE. [Concomitant]
     Active Substance: LANSOPRAZOLE
  6. CARDIRENE [Concomitant]
     Active Substance: ASPIRIN DL-LYSINE

REACTIONS (4)
  - Hypokalaemia [Unknown]
  - Aphasia [Unknown]
  - Decreased appetite [Unknown]
  - Sopor [Unknown]

NARRATIVE: CASE EVENT DATE: 20170722
